FAERS Safety Report 8606786 (Version 3)
Quarter: 2013Q4

REPORT INFORMATION
  Report Type: Spontaneous
  Country: US (occurrence: US)
  Receive Date: 20120611
  Receipt Date: 20131204
  Transmission Date: 20140711
  Serious: No
  Sender: FDA-Public Use
  Company Number: US-ASTRAZENECA-2012SE35804

PATIENT
  Age: 61 Year
  Sex: Female

DRUGS (16)
  1. NEXIUM [Suspect]
     Route: 048
  2. NEXIUM [Suspect]
     Dosage: ONE AND TWICE PER DAY
     Route: 048
     Dates: start: 2002, end: 2010
  3. PRILOSEC/MOPRAL [Suspect]
     Dosage: ONE DAY
     Route: 048
  4. PROTONIX [Concomitant]
     Dosage: ONE DAY
  5. PREVACID [Concomitant]
     Dosage: ONE DAY
  6. ACIPHEX [Concomitant]
     Dosage: ONE DAY
  7. DEXILANT [Concomitant]
     Dosage: ONE DAY
  8. CRESTOR [Concomitant]
  9. LEVOTHYROXINE [Concomitant]
     Dosage: 05 1D
  10. BENICAR [Concomitant]
     Dosage: 20/125 MG 1 D
  11. METHOMINE HCL [Concomitant]
     Dosage: 500 MG 1D
  12. OSTEO BI FLEX [Concomitant]
     Dosage: TRIPLE STRENGTH
  13. OSCAL EXTRA 3D [Concomitant]
     Dosage: 500 M 2D
  14. ACTONEL 125 [Concomitant]
     Dosage: 35 MG, 1W
  15. TURMERIC EXTRA [Concomitant]
     Dosage: 2 D
  16. VIT D3 [Concomitant]
     Dosage: 2000 14 2D

REACTIONS (3)
  - Osteoporosis [Unknown]
  - Multiple fractures [Unknown]
  - Osteopenia [Unknown]
